FAERS Safety Report 17881478 (Version 1)
Quarter: 2020Q2

REPORT INFORMATION
  Report Type: Spontaneous
  Country: US (occurrence: US)
  Receive Date: 20200610
  Receipt Date: 20200610
  Transmission Date: 20200714
  Serious: No
  Sender: FDA-Public Use
  Company Number: US-COLLEGIUM PHARMACEUTICAL, INC.-2020CGM00072

PATIENT
  Age: 74 Year
  Sex: Female

DRUGS (2)
  1. XTAMPZA ER [Suspect]
     Active Substance: OXYCODONE
     Indication: PAIN
     Dosage: UNK
     Dates: start: 201911, end: 202003
  2. XTAMPZA ER [Suspect]
     Active Substance: OXYCODONE
     Dosage: ^INCREASED HER DOSAGE^
     Dates: start: 202003

REACTIONS (2)
  - Drug ineffective [Not Recovered/Not Resolved]
  - Pain in extremity [Not Recovered/Not Resolved]

NARRATIVE: CASE EVENT DATE: 201911
